FAERS Safety Report 14318026 (Version 1)
Quarter: 2017Q4

REPORT INFORMATION
  Report Type: Other
  Country: US (occurrence: ES)
  Receive Date: 20171222
  Receipt Date: 20171222
  Transmission Date: 20180321
  Serious: Yes (Other)
  Sender: FDA-Public Use
  Company Number: ES-BRECKENRIDGE PHARMACEUTICAL, INC.-2037648

PATIENT
  Age: 67 Year
  Sex: Male

DRUGS (1)
  1. ZOLEDRONIC ACID [Suspect]
     Active Substance: ZOLEDRONIC ACID
     Indication: BONE PAIN

REACTIONS (2)
  - Optic neuropathy [Not Recovered/Not Resolved]
  - Optic nerve injury [Not Recovered/Not Resolved]
